FAERS Safety Report 7599461-9 (Version None)
Quarter: 2011Q3

REPORT INFORMATION
  Report Type: 
  Country: None (occurrence: None)
  Receive Date: 20110711
  Receipt Date: 20110629
  Transmission Date: 20111222
  Serious: Yes (Death, Hospitalization)
  Sender: FDA-Public Use
  Company Number: JP-BAYER-2011-046889

PATIENT
  Sex: Male
  Weight: 65 kg

DRUGS (9)
  1. NEXAVAR [Suspect]
     Indication: HEPATIC NEOPLASM MALIGNANT
     Dosage: 400 MG, BID
     Route: 048
     Dates: start: 20110503, end: 20110507
  2. AMARYL [Concomitant]
     Route: 048
  3. PYDOXAL [Concomitant]
     Route: 065
  4. LASIX [Concomitant]
     Route: 065
  5. ALDACTONE [Concomitant]
     Route: 048
  6. BASEN [Concomitant]
     Route: 048
  7. URINORM [Concomitant]
     Route: 048
  8. NEXAVAR [Suspect]
     Dosage: DAILY DOSE 400 MG
     Route: 048
     Dates: start: 20110520, end: 20110523
  9. CRESTOR [Concomitant]
     Route: 048

REACTIONS (3)
  - INTERSTITIAL LUNG DISEASE [None]
  - HEPATIC NEOPLASM MALIGNANT [None]
  - PNEUMOMEDIASTINUM [None]
